FAERS Safety Report 23980780 (Version 2)
Quarter: 2024Q4

REPORT INFORMATION
  Report Type: Spontaneous
  Country: DE (occurrence: DE)
  Receive Date: 20240617
  Receipt Date: 20241008
  Transmission Date: 20250115
  Serious: Yes (Other)
  Sender: AUROBINDO
  Company Number: DE-ROCHE-2636591

PATIENT
  Age: 51 Year
  Sex: Female

DRUGS (9)
  1. IBUPROFEN [Suspect]
     Active Substance: IBUPROFEN
     Indication: Inflammation
     Dosage: 600 MILLIGRAM, 3 TIMES A DAY
     Route: 065
  2. COMIRNATY (TOZINAMERAN) [Suspect]
     Active Substance: TOZINAMERAN
     Indication: Product used for unknown indication
     Dosage: THIRD SARS-COV-2 VACCINE
     Route: 065
     Dates: start: 20211214
  3. OCREVUS [Suspect]
     Active Substance: OCRELIZUMAB
     Indication: Primary progressive multiple sclerosis
     Dosage: 600 MILLIGRAM, EVERY 191 DAYS
     Route: 042
     Dates: start: 20200917
  4. OCREVUS [Suspect]
     Active Substance: OCRELIZUMAB
     Dosage: 300 MILLIGRAM, EVERY 14 DAYS (SUBSEQUENT DOSE ON 10/MAR/2020, 600MG, 185 DAYS,)
     Route: 042
     Dates: start: 20200224
  5. OCREVUS [Suspect]
     Active Substance: OCRELIZUMAB
     Dosage: 600 MILLIGRAM (MAINTENANCE DOSE)
     Route: 042
     Dates: start: 20210824
  6. DALFAMPRIDINE [Concomitant]
     Active Substance: DALFAMPRIDINE
     Indication: Product used for unknown indication
     Dosage: 10 MILLIGRAM, TWO TIMES A DAY
     Route: 065
  7. NALOXONE HYDROCHLORIDE\TILIDINE HYDROCHLORIDE [Concomitant]
     Active Substance: NALOXONE HYDROCHLORIDE\TILIDINE HYDROCHLORIDE
     Indication: Product used for unknown indication
     Dosage: UNK
     Route: 065
  8. BEROTEC [Concomitant]
     Active Substance: FENOTEROL HYDROBROMIDE
     Indication: Product used for unknown indication
     Dosage: UNK UNK, ONCE A DAY PUFFS
     Route: 065
  9. TROSPIUM CHLORIDE [Concomitant]
     Active Substance: TROSPIUM CHLORIDE
     Indication: Product used for unknown indication
     Dosage: 30 MILLIGRAM
     Route: 065

REACTIONS (25)
  - Immunosuppression [Not Recovered/Not Resolved]
  - Inflammation [Recovered/Resolved]
  - Middle insomnia [Recovered/Resolved]
  - Fall [Unknown]
  - Muscular weakness [Recovered/Resolved]
  - Muscle spasms [Recovering/Resolving]
  - Dry skin [Recovered/Resolved]
  - Vitamin D decreased [Recovered/Resolved]
  - Haematoma [Recovered/Resolved]
  - Pain [Recovered/Resolved]
  - Balance disorder [Recovered/Resolved]
  - Asthenia [Not Recovered/Not Resolved]
  - Contusion [Recovered/Resolved]
  - Bursitis [Recovered/Resolved]
  - Pain in extremity [Recovered/Resolved]
  - Oral herpes [Recovered/Resolved]
  - Cystitis noninfective [Recovered/Resolved]
  - Uhthoff^s phenomenon [Recovered/Resolved]
  - Alopecia [Recovered/Resolved]
  - Fatigue [Recovered/Resolved]
  - Arthralgia [Recovered/Resolved]
  - Muscle tightness [Recovered/Resolved]
  - Self-medication [Unknown]
  - Muscle spasticity [Not Recovered/Not Resolved]
  - Drug ineffective [Unknown]

NARRATIVE: CASE EVENT DATE: 20200317
